FAERS Safety Report 9216808 (Version 4)
Quarter: 2013Q2

REPORT INFORMATION
  Report Type: Report from Study
  Country: JP (occurrence: JP)
  Receive Date: 20130408
  Receipt Date: 20130621
  Transmission Date: 20140414
  Serious: No
  Sender: FDA-Public Use
  Company Number: JP-PFIZER INC-2013108354

PATIENT
  Age: 58 Year
  Sex: Male
  Weight: 71.7 kg

DRUGS (5)
  1. FOSPHENYTOIN SODIUM [Suspect]
     Indication: PROPHYLAXIS
     Dosage: 18 MG/KG AT 30 MG/MIN IN 0.9% PHYSIOLOGICAL SALINE (1:2)
     Dates: start: 20121029
  2. FOSPHENYTOIN SODIUM [Suspect]
     Dosage: 7.5 MG/KG/DAY AT 50 MG/MIN IN 0.9% PHYSIOLOGICAL SALINE (1:7)
     Dates: start: 20121030, end: 20121030
  3. AMLODIN [Concomitant]
     Dosage: 50 MG, UNK
     Route: 048
     Dates: start: 20121025, end: 20121105
  4. DEPAKENE [Concomitant]
     Indication: EPILEPSY
     Dosage: 800 MG, UNK
     Route: 048
     Dates: start: 20121030, end: 20121105
  5. DEPAKENE [Concomitant]
     Dosage: 1000 MG, UNK
     Route: 048
     Dates: start: 20121106

REACTIONS (1)
  - Oedema peripheral [Recovered/Resolved]
